FAERS Safety Report 7420093-7 (Version None)
Quarter: 2011Q2

REPORT INFORMATION
  Report Type: 
  Country: None (occurrence: None)
  Receive Date: 20110418
  Receipt Date: 20110407
  Transmission Date: 20111010
  Serious: No
  Sender: FDA-Public Use
  Company Number: US-BIOGENIDEC-2011BI013521

PATIENT
  Sex: Male

DRUGS (3)
  1. TYSABRI [Suspect]
     Route: 042
     Dates: start: 20061120, end: 20071029
  2. TYSABRI [Suspect]
     Route: 042
     Dates: start: 20080825, end: 20100406
  3. TYSABRI [Suspect]
     Indication: MULTIPLE SCLEROSIS
     Route: 042
     Dates: start: 20101012

REACTIONS (3)
  - TEMPERATURE INTOLERANCE [None]
  - DIZZINESS [None]
  - LOSS OF CONSCIOUSNESS [None]
